FAERS Safety Report 8264845-2 (Version None)
Quarter: 2012Q2

REPORT INFORMATION
  Report Type: 
  Country: None (occurrence: None)
  Receive Date: 20120406
  Receipt Date: 20120328
  Transmission Date: 20120825
  Serious: Yes (Other)
  Sender: FDA-Public Use
  Company Number: AT-JNJFOC-20120314007

PATIENT
  Age: 62 Year
  Sex: Female

DRUGS (30)
  1. LEVOTHYROXINE SODIUM [Interacting]
     Indication: PRODUCT USED FOR UNKNOWN INDICATION
     Route: 065
  2. HYDROMORPHONE HYDROCHLORIDE [Interacting]
     Route: 048
  3. FENTANYL CITRATE [Suspect]
     Indication: ARTHRALGIA
     Route: 062
  4. NITROGLYCERIN [Interacting]
     Indication: PRODUCT USED FOR UNKNOWN INDICATION
     Route: 062
  5. HYDROMORPHONE HYDROCHLORIDE [Interacting]
     Indication: BONE PAIN
     Route: 048
  6. EXEMESTANE [Interacting]
     Indication: NEOPLASM MALIGNANT
     Route: 065
  7. MIDAZOLAM [Interacting]
     Indication: SEDATION
     Dosage: 1 MG/H UP TO 7 MG/H AND 3MG BOLUS
     Route: 058
  8. FENTANYL CITRATE [Suspect]
     Route: 062
  9. FENTANYL CITRATE [Suspect]
     Route: 062
  10. DIAZEPAM [Interacting]
     Indication: PRODUCT USED FOR UNKNOWN INDICATION
     Route: 065
  11. ASPIRIN [Interacting]
     Indication: PRODUCT USED FOR UNKNOWN INDICATION
     Route: 065
  12. SIMVASTATIN [Interacting]
     Indication: PRODUCT USED FOR UNKNOWN INDICATION
     Route: 065
  13. GABAPENTIN [Interacting]
     Indication: BONE PAIN
     Route: 065
  14. METAMIZOL [Interacting]
     Indication: PRODUCT USED FOR UNKNOWN INDICATION
     Route: 065
  15. QUETIAPINE [Interacting]
     Indication: DELIRIUM
     Route: 048
  16. FENTANYL CITRATE [Suspect]
     Indication: PAIN IN EXTREMITY
     Route: 062
  17. FENTANYL CITRATE [Suspect]
     Route: 062
  18. DOXORUBICIN HCL [Interacting]
     Indication: NEOPLASM MALIGNANT
     Route: 042
  19. POLYETHYLENE GLYCOL [Interacting]
     Indication: PRODUCT USED FOR UNKNOWN INDICATION
     Route: 065
  20. BISPHOSPHONATE [Interacting]
     Indication: PRODUCT USED FOR UNKNOWN INDICATION
     Route: 065
  21. FLUOXETINE HCL [Interacting]
     Indication: PRODUCT USED FOR UNKNOWN INDICATION
     Route: 065
  22. AMITRIPTYLINE HYDROCHLORIDE [Interacting]
     Indication: PRODUCT USED FOR UNKNOWN INDICATION
     Route: 065
  23. FULVESTRANT [Interacting]
     Indication: HORMONE THERAPY
     Route: 065
  24. ALPRAZOLAM [Interacting]
     Indication: PRODUCT USED FOR UNKNOWN INDICATION
     Route: 065
  25. LORAZEPAM [Interacting]
     Indication: DELIRIUM
     Route: 065
  26. ANASTROZOLE [Interacting]
     Indication: HORMONE THERAPY
     Route: 065
  27. QUETIAPINE [Interacting]
     Route: 048
  28. FENTANYL CITRATE [Suspect]
     Route: 062
  29. HALOPERIDOL [Interacting]
     Indication: DELIRIUM
     Dosage: 5-10 MG
     Route: 042
  30. METOPROLOL TARTRATE [Interacting]
     Indication: PRODUCT USED FOR UNKNOWN INDICATION
     Route: 065

REACTIONS (4)
  - INCORRECT ROUTE OF DRUG ADMINISTRATION [None]
  - DELIRIUM [None]
  - HEMIPARESIS [None]
  - DRUG INTERACTION [None]
